FAERS Safety Report 8059109-6 (Version None)
Quarter: 2012Q1

REPORT INFORMATION
  Report Type: 
  Country: None (occurrence: None)
  Receive Date: 20120120
  Receipt Date: 20120110
  Transmission Date: 20120608
  Serious: Yes (Other)
  Sender: FDA-Public Use
  Company Number: US-BAYER-2011-075645

PATIENT
  Age: 25 Year
  Sex: Female
  Weight: 63.492 kg

DRUGS (3)
  1. RELPAX [Concomitant]
     Indication: MIGRAINE
     Dosage: UNK
     Dates: start: 20060101, end: 20090101
  2. YASMIN [Suspect]
     Dosage: UNK
     Dates: start: 20060101, end: 20090101
  3. DROSPIRENONE AND ETHINYL ESTRADIOL [Suspect]
     Dosage: UNK
     Dates: start: 20060101, end: 20090101

REACTIONS (2)
  - THROMBOSIS [None]
  - INJURY [None]
